FAERS Safety Report 18916868 (Version 1)
Quarter: 2021Q1

REPORT INFORMATION
  Report Type: Spontaneous
  Country: US (occurrence: US)
  Receive Date: 20210219
  Receipt Date: 20210219
  Transmission Date: 20210420
  Serious: Yes (Other)
  Sender: FDA-Public Use
  Company Number: US-ELI_LILLY_AND_COMPANY-US202102004782

PATIENT
  Age: 28 Year
  Sex: Male
  Weight: 172 kg

DRUGS (1)
  1. BAMLANIVIMAB 700MG [Suspect]
     Active Substance: BAMLANIVIMAB
     Indication: COVID-19
     Dosage: 700 MG, SINGLE
     Route: 042
     Dates: start: 20210205, end: 20210205

REACTIONS (8)
  - Blood pressure systolic decreased [Unknown]
  - Infusion related reaction [Unknown]
  - Vomiting [Unknown]
  - Nausea [Recovered/Resolved]
  - Hypotension [Unknown]
  - Pallor [Recovered/Resolved]
  - Feeling hot [Recovered/Resolved]
  - Burning sensation [Recovered/Resolved]

NARRATIVE: CASE EVENT DATE: 20210205
